FAERS Safety Report 13410979 (Version 2)
Quarter: 2017Q4

REPORT INFORMATION
  Report Type: Spontaneous
  Country: US (occurrence: US)
  Receive Date: 20170406
  Receipt Date: 20171123
  Transmission Date: 20180320
  Serious: No
  Sender: FDA-Public Use
  Company Number: US-JNJFOC-20170303447

PATIENT
  Age: 15 Year
  Sex: Male

DRUGS (8)
  1. RISPERIDONE. [Suspect]
     Active Substance: RISPERIDONE
     Indication: CHOREA
     Route: 048
     Dates: start: 20100317, end: 20120424
  2. RISPERDAL [Suspect]
     Active Substance: RISPERIDONE
     Indication: DYSTONIA
     Dosage: IN VARYING DOSES OF 0.25 MG AND 1 MG
     Route: 048
     Dates: start: 20051228, end: 20120319
  3. RISPERIDONE. [Suspect]
     Active Substance: RISPERIDONE
     Indication: CHOREA
     Route: 048
     Dates: start: 20080805, end: 20091231
  4. RISPERDAL [Suspect]
     Active Substance: RISPERIDONE
     Indication: CHOREA
     Dosage: IN VARYING DOSES OF 0.25 MG AND 1 MG
     Route: 048
     Dates: start: 20051228, end: 20120319
  5. RISPERIDONE. [Suspect]
     Active Substance: RISPERIDONE
     Indication: DYSTONIA
     Route: 048
     Dates: start: 20100317, end: 20120424
  6. RISPERIDONE. [Suspect]
     Active Substance: RISPERIDONE
     Indication: DYSTONIA
     Route: 048
     Dates: start: 20080805, end: 20091231
  7. RISPERDAL [Suspect]
     Active Substance: RISPERIDONE
     Indication: CHOREA
     Route: 048
     Dates: start: 2012, end: 20120424
  8. RISPERDAL [Suspect]
     Active Substance: RISPERIDONE
     Indication: DYSTONIA
     Route: 048
     Dates: start: 2012, end: 20120424

REACTIONS (4)
  - Emotional disorder [Unknown]
  - Off label use [Unknown]
  - Gynaecomastia [Unknown]
  - Product use in unapproved indication [Unknown]

NARRATIVE: CASE EVENT DATE: 20051228
